FAERS Safety Report 11218799 (Version 1)
Quarter: 2015Q2

REPORT INFORMATION
  Report Type: Spontaneous
  Country: BE (occurrence: BE)
  Receive Date: 20150625
  Receipt Date: 20150625
  Transmission Date: 20150821
  Serious: Yes (Death, Hospitalization, Other)
  Sender: FDA-Public Use
  Company Number: BE-GLAXOSMITHKLINE-BE2015GSK089973

PATIENT
  Age: 44 Year
  Sex: Male

DRUGS (5)
  1. SAQUINAVIR [Suspect]
     Active Substance: SAQUINAVIR
     Indication: HIV INFECTION
  2. ZIDOVUDINE. [Suspect]
     Active Substance: ZIDOVUDINE
     Indication: HIV INFECTION
  3. LAMIVUDINE. [Suspect]
     Active Substance: LAMIVUDINE
     Indication: HIV INFECTION
  4. ABACAVIR [Suspect]
     Active Substance: ABACAVIR
     Indication: HIV INFECTION
  5. RITONAVIR. [Suspect]
     Active Substance: RITONAVIR
     Indication: HIV INFECTION

REACTIONS (16)
  - Fatigue [Unknown]
  - Cytomegalovirus infection [Unknown]
  - Aspergillus infection [Unknown]
  - Abscess [Unknown]
  - Dyspnoea [Unknown]
  - Bronchopneumonia [Fatal]
  - Pyrexia [Unknown]
  - Infection [Unknown]
  - Mycobacterium test positive [Unknown]
  - Pulmonary oedema [Fatal]
  - Mycobacterium avium complex infection [Unknown]
  - Decreased appetite [Unknown]
  - Immune reconstitution inflammatory syndrome [Fatal]
  - Central nervous system lesion [Unknown]
  - Brain oedema [Fatal]
  - Progressive multifocal leukoencephalopathy [Unknown]
